FAERS Safety Report 5478565-0 (Version None)
Quarter: 2007Q4

REPORT INFORMATION
  Report Type: 
  Country: None (occurrence: None)
  Receive Date: 20071005
  Receipt Date: 20070927
  Transmission Date: 20080405
  Serious: Yes (Other)
  Sender: FDA-Public Use
  Company Number: US-ELI_LILLY_AND_COMPANY-US200709006746

PATIENT
  Sex: Female

DRUGS (7)
  1. XIGRIS [Suspect]
     Indication: SEPTIC SHOCK
     Dosage: OTHER,FULL 4 DAY COURSE
     Dates: start: 20040101, end: 20040101
  2. OXYGEN [Concomitant]
     Indication: MECHANICAL VENTILATION
     Dosage: UNK, UNK
     Route: 007
     Dates: start: 20040101, end: 20040101
  3. METFORMIN HCL [Concomitant]
  4. CELEXA [Concomitant]
  5. HYDROCHLOROTHIAZIDE [Concomitant]
  6. NEURONTIN [Concomitant]
  7. GEMFIBROZIL [Concomitant]
     Indication: BLOOD CHOLESTEROL

REACTIONS (3)
  - INSOMNIA [None]
  - POSTOPERATIVE HERNIA [None]
  - TOOTH LOSS [None]
